FAERS Safety Report 9354206 (Version 2)
Quarter: 2013Q3

REPORT INFORMATION
  Report Type: Spontaneous
  Country: US (occurrence: US)
  Receive Date: 20130618
  Receipt Date: 20130718
  Transmission Date: 20140515
  Serious: Yes (Other)
  Sender: FDA-Public Use
  Company Number: US-ABBOTT-13P-163-1103913-00

PATIENT
  Sex: Female
  Weight: 85.35 kg

DRUGS (5)
  1. DEPAKOTE ER [Suspect]
     Indication: INSOMNIA
     Dosage: AT 5 P.M. WITH DINNER
     Dates: start: 2005, end: 2005
  2. GEODON [Suspect]
     Indication: PRODUCT USED FOR UNKNOWN INDICATION
  3. ABILIFY [Suspect]
     Indication: PRODUCT USED FOR UNKNOWN INDICATION
  4. ZYPREXA [Suspect]
     Indication: MENTAL DISORDER
  5. INVEGA [Suspect]
     Indication: PRODUCT USED FOR UNKNOWN INDICATION

REACTIONS (7)
  - Impaired work ability [Recovered/Resolved]
  - Hypersomnia [Unknown]
  - Hypertension [Recovered/Resolved]
  - Weight increased [Recovered/Resolved]
  - Diabetes mellitus [Recovered/Resolved]
  - Insomnia [Recovered/Resolved]
  - Somnolence [Recovered/Resolved]
